FAERS Safety Report 5117592-X (Version None)
Quarter: 2006Q3

REPORT INFORMATION
  Report Type: 
  Country: None (occurrence: None)
  Receive Date: 20060926
  Receipt Date: 20060911
  Transmission Date: 20061208
  Serious: Yes (Death)
  Sender: FDA-Public Use
  Company Number: IT200609003027

PATIENT
  Age: 3 Year
  Sex: Male

DRUGS (4)
  1. CEFACLOR [Suspect]
     Dosage: 150 MG, ORAL
     Route: 048
     Dates: start: 20060824, end: 20060824
  2. TACHIPIRINA (PARACETAMOL) [Concomitant]
  3. HERBAL PREPARATION [Concomitant]
  4. FROBEN /IRE/ (FLURBIPROFEN) [Concomitant]

REACTIONS (4)
  - BLOOD GLUCOSE INCREASED [None]
  - RHABDOMYOLYSIS [None]
  - VENTRICULAR FIBRILLATION [None]
  - WHITE BLOOD CELL COUNT INCREASED [None]
